FAERS Safety Report 25797439 (Version 1)
Quarter: 2025Q3

REPORT INFORMATION
  Report Type: Other
  Country: EU (occurrence: EU)
  Receive Date: 20250912
  Receipt Date: 20250912
  Transmission Date: 20251020
  Serious: Yes (Death, Other)
  Sender: EMD SERONO INC
  Company Number: EU-Merck Healthcare KGaA-2025046141

PATIENT
  Age: 9 Decade
  Sex: Male

DRUGS (1)
  1. AVELUMAB [Suspect]
     Active Substance: AVELUMAB
     Indication: Neuroendocrine carcinoma of the skin

REACTIONS (5)
  - Disease progression [Fatal]
  - Peripheral sensorimotor neuropathy [Unknown]
  - Paraesthesia [Unknown]
  - Ataxia [Unknown]
  - Muscular weakness [Unknown]
